FAERS Safety Report 15062218 (Version 2)
Quarter: 2018Q3

REPORT INFORMATION
  Report Type: Spontaneous
  Country: US (occurrence: US)
  Receive Date: 20180625
  Receipt Date: 20180723
  Transmission Date: 20181010
  Serious: Yes (Hospitalization, Other)
  Sender: FDA-Public Use
  Company Number: US-ELI_LILLY_AND_COMPANY-US201806007353

PATIENT
  Age: 43 Year
  Sex: Female

DRUGS (3)
  1. HUMIRA [Suspect]
     Active Substance: ADALIMUMAB
     Dosage: UNK, UNKNOWN
     Route: 058
     Dates: start: 201803
  2. HUMIRA [Suspect]
     Active Substance: ADALIMUMAB
     Indication: ANKYLOSING SPONDYLITIS
     Dosage: UNK, UNKNOWN
     Route: 058
  3. CYMBALTA [Suspect]
     Active Substance: DULOXETINE HYDROCHLORIDE
     Indication: PRODUCT USED FOR UNKNOWN INDICATION
     Dosage: UNK, UNKNOWN
     Route: 065

REACTIONS (40)
  - Streptococcal urinary tract infection [Recovering/Resolving]
  - Animal scratch [Unknown]
  - Back injury [Unknown]
  - Inflammatory marker increased [Unknown]
  - Red blood cell sedimentation rate increased [Unknown]
  - Fall [Not Recovered/Not Resolved]
  - Fall [Recovered/Resolved]
  - Fatigue [Unknown]
  - Concussion [Not Recovered/Not Resolved]
  - Abulia [Not Recovered/Not Resolved]
  - Language disorder [Not Recovered/Not Resolved]
  - Rib fracture [Unknown]
  - Pancreatitis viral [Unknown]
  - Memory impairment [Not Recovered/Not Resolved]
  - Tooth loss [Not Recovered/Not Resolved]
  - Sternal fracture [Unknown]
  - Glaucoma [Unknown]
  - Oropharyngeal pain [Recovered/Resolved]
  - Contusion [Unknown]
  - Diarrhoea [Recovered/Resolved]
  - Device issue [Recovering/Resolving]
  - Urinary tract infection [Recovered/Resolved]
  - Stress [Unknown]
  - Pain [Unknown]
  - Migraine [Not Recovered/Not Resolved]
  - Mania [Recovered/Resolved]
  - Asthenia [Not Recovered/Not Resolved]
  - Syncope [Recovered/Resolved]
  - Joint injury [Unknown]
  - Hepatic enzyme increased [Not Recovered/Not Resolved]
  - Tooth infection [Unknown]
  - Depression [Unknown]
  - Dizziness [Recovered/Resolved]
  - Head injury [Unknown]
  - Swelling [Recovering/Resolving]
  - Arthralgia [Unknown]
  - Cardiac murmur [Unknown]
  - Nephrolithiasis [Unknown]
  - Infection [Recovered/Resolved]
  - Feeling abnormal [Unknown]

NARRATIVE: CASE EVENT DATE: 2015
